FAERS Safety Report 18398986 (Version 1)
Quarter: 2020Q4

REPORT INFORMATION
  Report Type: Spontaneous
  Country: US (occurrence: US)
  Receive Date: 20201019
  Receipt Date: 20201019
  Transmission Date: 20210114
  Serious: Yes (Hospitalization, Other)
  Sender: FDA-Public Use
  Company Number: US-TARO-2020TAR01588

PATIENT
  Age: 39 Year
  Sex: Female

DRUGS (2)
  1. CARBAMAZEPINE. [Suspect]
     Active Substance: CARBAMAZEPINE
     Indication: EPILEPSY
     Dosage: UNK
     Route: 065
  2. LAMOTRIGINE. [Suspect]
     Active Substance: LAMOTRIGINE
     Indication: EPILEPSY
     Dosage: UNK
     Route: 065

REACTIONS (10)
  - Drug reaction with eosinophilia and systemic symptoms [Recovering/Resolving]
  - Face oedema [Unknown]
  - Hepatic failure [Recovering/Resolving]
  - Hypovolaemic shock [Unknown]
  - Acute respiratory distress syndrome [Recovering/Resolving]
  - Diabetic ketoacidosis [Recovering/Resolving]
  - Seizure [Unknown]
  - Steatohepatitis [Unknown]
  - Sepsis [Recovering/Resolving]
  - Pneumonia bacterial [Recovering/Resolving]
